FAERS Safety Report 9747670 (Version 1)
Quarter: 2013Q4

REPORT INFORMATION
  Report Type: Spontaneous
  Country: US (occurrence: None)
  Receive Date: 20131211
  Receipt Date: 20131211
  Transmission Date: 20140711
  Serious: Yes (Other)
  Sender: FDA-Public Use
  Company Number: None

PATIENT
  Age: 43 Year
  Sex: Male
  Weight: 83.92 kg

DRUGS (1)
  1. JACK RABBIT SUPPLEMENT [Suspect]
     Dates: start: 20131204, end: 20131204

REACTIONS (2)
  - Headache [None]
  - Haematemesis [None]
